FAERS Safety Report 5307555-3 (Version None)
Quarter: 2007Q2

REPORT INFORMATION
  Report Type: 
  Country: None (occurrence: None)
  Receive Date: 20070425
  Receipt Date: 20070413
  Transmission Date: 20071010
  Serious: Yes (Other)
  Sender: FDA-Public Use
  Company Number: US-ELI_LILLY_AND_COMPANY-US200704001125

PATIENT
  Age: 58 Year
  Sex: Female
  Weight: 59.863 kg

DRUGS (2)
  1. FORTEO [Suspect]
     Indication: OSTEOPOROSIS
     Dosage: 20 UG, DAILY (1/D)
     Dates: start: 20061020
  2. FORTEO [Suspect]
     Dosage: UNK D/F, UNK

REACTIONS (12)
  - BLOOD CHOLESTEROL INCREASED [None]
  - BLOOD TRIGLYCERIDES INCREASED [None]
  - FALL [None]
  - FATIGUE [None]
  - LIMB INJURY [None]
  - LOSS OF CONSCIOUSNESS [None]
  - MUSCLE SPASMS [None]
  - NAUSEA [None]
  - PAIN [None]
  - PERIORBITAL HAEMATOMA [None]
  - SYNCOPE [None]
  - VITAMIN D DECREASED [None]
